FAERS Safety Report 11874925 (Version 1)
Quarter: 2015Q4

REPORT INFORMATION
  Report Type: Report from Study
  Country: US (occurrence: US)
  Receive Date: 20151229
  Receipt Date: 20151229
  Transmission Date: 20160305
  Serious: Yes (Hospitalization)
  Sender: FDA-Public Use
  Company Number: PHEH2015US003771

PATIENT
  Sex: Male

DRUGS (2)
  1. TOBI [Suspect]
     Active Substance: TOBRAMYCIN
     Dosage: 300MG/5ML, BID EVERY OTHER MONTH AS DIRECTED
     Route: 055
  2. TOBI [Suspect]
     Active Substance: TOBRAMYCIN
     Indication: PNEUMONIA
     Dosage: 300MG/5ML, BID EVERY OTHER MONTH AS DIRECTED
     Route: 055

REACTIONS (2)
  - Application site haemorrhage [Unknown]
  - Malaise [Unknown]
